FAERS Safety Report 6123667-9 (Version None)
Quarter: 2009Q1

REPORT INFORMATION
  Report Type: 
  Country: None (occurrence: None)
  Receive Date: 20090319
  Receipt Date: 20090311
  Transmission Date: 20090719
  Serious: Yes (Hospitalization)
  Sender: FDA-Public Use
  Company Number: DE-JNJFOC-20090302496

PATIENT
  Age: 80 Year
  Sex: Male

DRUGS (8)
  1. RISPERDAL [Suspect]
     Indication: DRUG USE FOR UNKNOWN INDICATION
     Route: 048
  2. DELIX [Concomitant]
     Route: 048
  3. BISOPROLOL [Concomitant]
     Route: 048
  4. FUROSEMID [Concomitant]
     Route: 048
  5. AQUAFOR [Concomitant]
     Route: 048
  6. ASPIRIN [Concomitant]
     Route: 048
  7. PANTOZOL [Concomitant]
     Route: 048
  8. ALLOPURINOL [Concomitant]
     Route: 048

REACTIONS (2)
  - DYSKINESIA [None]
  - RENAL FAILURE [None]
